FAERS Safety Report 5490702-0 (Version None)
Quarter: 2007Q4

REPORT INFORMATION
  Report Type: 
  Country: None (occurrence: None)
  Receive Date: 20071019
  Receipt Date: 20071011
  Transmission Date: 20080405
  Serious: Yes (Other)
  Sender: FDA-Public Use
  Company Number: SE-ELI_LILLY_AND_COMPANY-SE200710003517

PATIENT
  Sex: Female

DRUGS (1)
  1. OLANZAPINE [Suspect]
     Indication: DEPRESSION

REACTIONS (5)
  - APATHY [None]
  - CEREBRAL HAEMORRHAGE [None]
  - HALLUCINATION [None]
  - THROMBOSIS [None]
  - WEIGHT INCREASED [None]
